FAERS Safety Report 9132714 (Version 2)
Quarter: 2013Q1

REPORT INFORMATION
  Report Type: Report from Study
  Country: US (occurrence: US)
  Receive Date: 20130301
  Receipt Date: 20130306
  Transmission Date: 20140127
  Serious: Yes (Death)
  Sender: FDA-Public Use
  Company Number: US-ROCHE-1195834

PATIENT
  Sex: Female
  Weight: 76.36 kg

DRUGS (11)
  1. XELODA [Suspect]
     Indication: NEOPLASM MALIGNANT
     Route: 065
  2. ACTOS [Concomitant]
  3. CELEXA [Concomitant]
  4. NEXIUM [Concomitant]
  5. REGLAN [Concomitant]
  6. SYNTHROID [Concomitant]
  7. ZOFRAN [Concomitant]
  8. LASIX [Concomitant]
  9. VITAMIN B12 [Concomitant]
  10. NEXIUM [Concomitant]
  11. NORCO [Concomitant]

REACTIONS (1)
  - Metastatic neoplasm [Fatal]
